FAERS Safety Report 9445057 (Version 1)
Quarter: 2013Q3

REPORT INFORMATION
  Report Type: Spontaneous
  Country: US (occurrence: US)
  Receive Date: 20130807
  Receipt Date: 20130807
  Transmission Date: 20140515
  Serious: Yes (Other)
  Sender: FDA-Public Use
  Company Number: US-PFIZER INC-2013224291

PATIENT
  Age: 80 Year
  Sex: Male

DRUGS (2)
  1. METHYLPREDNISOLONE ACETATE [Suspect]
     Indication: BENIGN PROSTATIC HYPERPLASIA
     Dosage: UNK
     Dates: start: 20120912
  2. METHYLPREDNISOLONE ACETATE [Suspect]
     Indication: BLOOD PRESSURE INCREASED

REACTIONS (2)
  - Product contamination [Recovered/Resolved]
  - Meningitis fungal [Recovered/Resolved]
